FAERS Safety Report 6361196-8 (Version None)
Quarter: 2009Q3

REPORT INFORMATION
  Report Type: 
  Country: None (occurrence: None)
  Receive Date: 20090918
  Receipt Date: 20090909
  Transmission Date: 20100115
  Serious: Yes (Other)
  Sender: FDA-Public Use
  Company Number: CA-ABBOTT-09P-028-0596274-00

PATIENT
  Age: 54 Year
  Sex: Male

DRUGS (3)
  1. BIAXIN XL [Suspect]
     Indication: RESPIRATORY TRACT INFECTION
     Route: 048
  2. DIOVAN [Concomitant]
     Indication: DRUG USE FOR UNKNOWN INDICATION
  3. LIPITOR [Concomitant]
     Indication: DRUG USE FOR UNKNOWN INDICATION

REACTIONS (1)
  - ACUTE PROMYELOCYTIC LEUKAEMIA [None]
